FAERS Safety Report 7382104-7 (Version None)
Quarter: 2011Q1

REPORT INFORMATION
  Report Type: 
  Country: None (occurrence: None)
  Receive Date: 20110329
  Receipt Date: 20110316
  Transmission Date: 20110831
  Serious: Yes (Other)
  Sender: FDA-Public Use
  Company Number: PHHY2011JP23346

PATIENT
  Age: 59 Year
  Sex: Male

DRUGS (1)
  1. ZOMETA [Suspect]
     Dosage: UNK

REACTIONS (2)
  - INFECTION [None]
  - PYREXIA [None]
